FAERS Safety Report 10109938 (Version 1)
Quarter: 2014Q2

REPORT INFORMATION
  Report Type: Report from Study
  Country: US (occurrence: US)
  Receive Date: 20140425
  Receipt Date: 20140425
  Transmission Date: 20141212
  Serious: Yes (Hospitalization, Other)
  Sender: FDA-Public Use
  Company Number: PHEH2014US008075

PATIENT
  Sex: Female

DRUGS (2)
  1. GLEEVEC [Suspect]
     Indication: NEOPLASM MALIGNANT
     Dosage: 400 MG, A DAY
     Route: 048
  2. GLEEVEC [Suspect]
     Indication: OFF LABEL USE
     Dosage: 100 MG, 2 TABLETS ONCE DAILY
     Route: 048

REACTIONS (3)
  - Hemiplegia [Unknown]
  - Spinal cord haemorrhage [Unknown]
  - Neoplasm recurrence [Unknown]
